FAERS Safety Report 24644389 (Version 1)
Quarter: 2024Q4

REPORT INFORMATION
  Report Type: Spontaneous
  Country: US (occurrence: None)
  Receive Date: 20241120
  Receipt Date: 20241120
  Transmission Date: 20250114
  Serious: No
  Sender: AJANTA PHARMA USA INC
  Company Number: US-AJANTA-2024AJA00180

PATIENT

DRUGS (1)
  1. DULOXETINE [Suspect]
     Active Substance: DULOXETINE
     Indication: Product used for unknown indication

REACTIONS (4)
  - Diarrhoea [Unknown]
  - Dizziness [Unknown]
  - Headache [Unknown]
  - Anxiety [Unknown]

NARRATIVE: CASE EVENT DATE: 20241025
